FAERS Safety Report 12475720 (Version 1)
Quarter: 2016Q2

REPORT INFORMATION
  Report Type: Spontaneous
  Country: NL (occurrence: NL)
  Receive Date: 20160617
  Receipt Date: 20160617
  Transmission Date: 20160815
  Serious: Yes (Life-Threatening)
  Sender: FDA-Public Use
  Company Number: NL-JNJFOC-20160614671

PATIENT
  Sex: Male

DRUGS (4)
  1. LORAZEPAM. [Suspect]
     Active Substance: LORAZEPAM
     Indication: DEMENTIA WITH LEWY BODIES
     Route: 065
  2. CLOZAPINE. [Suspect]
     Active Substance: CLOZAPINE
     Indication: DEMENTIA WITH LEWY BODIES
     Route: 065
  3. RISPERIDONE. [Suspect]
     Active Substance: RISPERIDONE
     Indication: DEMENTIA WITH LEWY BODIES
     Route: 065
  4. RIVASTIGMINE. [Suspect]
     Active Substance: RIVASTIGMINE
     Indication: DEMENTIA WITH LEWY BODIES
     Route: 065

REACTIONS (3)
  - Off label use [Unknown]
  - Drug ineffective for unapproved indication [Unknown]
  - Psychotic disorder [Recovering/Resolving]
